FAERS Safety Report 4331576-0 (Version None)
Quarter: 2004Q1

REPORT INFORMATION
  Report Type: 
  Country: None (occurrence: None)
  Receive Date: 20040329
  Receipt Date: 20040318
  Transmission Date: 20041129
  Serious: Yes (Other)
  Sender: FDA-Public Use
  Company Number: TPA2004A00299

PATIENT
  Age: 48 Year
  Sex: Female

DRUGS (10)
  1. ACTOS [Suspect]
     Indication: DIABETES MELLITUS NON-INSULIN-DEPENDENT
     Dosage: PER ORAL
     Route: 048
  2. LIPITOR [Concomitant]
  3. IMIPRAMINE [Concomitant]
  4. NEURONTIN [Concomitant]
  5. LIDODERM PATCH (LIDOCAINE) (POULTICE OR PATCH) [Concomitant]
  6. ERY-TAB (ERYTHROMYCIN) [Concomitant]
  7. ZYRTEC [Concomitant]
  8. LEXAPRO [Concomitant]
  9. AVAPRO [Concomitant]
  10. ACIPHEX [Concomitant]

REACTIONS (4)
  - CAVERNOUS SINUS THROMBOSIS [None]
  - DIABETIC RETINOPATHY [None]
  - EYE HAEMORRHAGE [None]
  - MACULAR OEDEMA [None]
